FAERS Safety Report 16371140 (Version 1)
Quarter: 2019Q3

REPORT INFORMATION
  Report Type: Spontaneous
  Country: US (occurrence: US)
  Receive Date: 20190529
  Receipt Date: 20190529
  Transmission Date: 20191004
  Serious: Yes (Life-Threatening, Hospitalization)
  Sender: FDA-Public Use
  Company Number: None

PATIENT
  Age: 68 Year
  Sex: Female
  Weight: 67.05 kg

DRUGS (8)
  1. LEVEMIR [Concomitant]
     Active Substance: INSULIN DETEMIR
  2. TRULICITY [Suspect]
     Active Substance: DULAGLUTIDE
     Indication: INSULIN RESISTANT DIABETES
     Dosage: ?          OTHER FREQUENCY:WEEKLY;?
     Route: 058
     Dates: start: 20190416, end: 20190424
  3. PAROXETINE. [Concomitant]
     Active Substance: PAROXETINE
  4. ASPIRIN 81 MG [Concomitant]
     Active Substance: ASPIRIN
  5. LISINOPRIL 40 MG [Concomitant]
     Active Substance: LISINOPRIL
  6. LEVOTHYROXINE 100 [Concomitant]
  7. CRESTOR 40 [Concomitant]
  8. NOVOLOG [Concomitant]
     Active Substance: INSULIN ASPART

REACTIONS (6)
  - Dehydration [None]
  - Delirium [None]
  - Hyperkalaemia [None]
  - Nausea [None]
  - Acute kidney injury [None]
  - Vomiting [None]

NARRATIVE: CASE EVENT DATE: 20190425
